FAERS Safety Report 5665239-6 (Version None)
Quarter: 2008Q1

REPORT INFORMATION
  Report Type: 
  Country: None (occurrence: None)
  Receive Date: 20080314
  Receipt Date: 20080122
  Transmission Date: 20080703
  Serious: No
  Sender: FDA-Public Use
  Company Number: US-ABBOTT-07P-163-0416193-00

PATIENT
  Sex: Female
  Weight: 63.56 kg

DRUGS (2)
  1. HUMIRA [Suspect]
     Indication: RHEUMATOID ARTHRITIS
     Route: 058
     Dates: start: 20050101, end: 20070901
  2. HUMIRA [Suspect]
     Route: 058
     Dates: start: 20070901

REACTIONS (3)
  - JOINT SWELLING [None]
  - PAIN [None]
  - RHEUMATOID ARTHRITIS [None]
